FAERS Safety Report 5328032-X (Version None)
Quarter: 2007Q2

REPORT INFORMATION
  Report Type: 
  Country: None (occurrence: None)
  Receive Date: 20070517
  Receipt Date: 20070517
  Transmission Date: 20071010
  Serious: Yes (Hospitalization)
  Sender: FDA-Public Use
  Company Number: NZ-GENENTECH-230944

PATIENT
  Sex: Male
  Weight: 77.9 kg

DRUGS (20)
  1. BEVACIZUMAB [Suspect]
     Indication: COLORECTAL CANCER
     Dosage: 390 MG, Q2W
     Route: 042
     Dates: start: 20060922, end: 20060922
  2. CAPECITABINE [Suspect]
     Indication: COLORECTAL CANCER
     Dosage: 3300 MG, UNK
     Route: 048
     Dates: start: 20060922
  3. CAPECITABINE [Suspect]
     Dosage: 2800 MG, UNK
  4. OXALIPLATIN [Suspect]
     Indication: COLORECTAL CANCER
     Dosage: 160 MG, Q2W
     Route: 042
     Dates: start: 20060922
  5. PARACETAMOL [Concomitant]
     Indication: DRUG USE FOR UNKNOWN INDICATION
     Dates: start: 20060930, end: 20061007
  6. SEVREDOL [Concomitant]
     Indication: DRUG USE FOR UNKNOWN INDICATION
     Dates: start: 20060930, end: 20061006
  7. SENNA/DOCUSATE SODIUM [Concomitant]
     Indication: DRUG USE FOR UNKNOWN INDICATION
     Dates: start: 20060930, end: 20061012
  8. MAXOLON [Concomitant]
     Indication: DRUG USE FOR UNKNOWN INDICATION
     Dates: start: 20061002, end: 20061005
  9. LACTULOSE [Concomitant]
     Indication: DRUG USE FOR UNKNOWN INDICATION
     Dates: start: 20061003, end: 20061004
  10. CYCLIZINE [Concomitant]
     Indication: DRUG USE FOR UNKNOWN INDICATION
     Dates: start: 20061004, end: 20061004
  11. NOZINAN [Concomitant]
     Indication: DRUG USE FOR UNKNOWN INDICATION
     Dates: start: 20061004, end: 20061004
  12. LORAZEPAM [Concomitant]
     Indication: DRUG USE FOR UNKNOWN INDICATION
     Dates: start: 20061004, end: 20061004
  13. MICROLAX [Concomitant]
     Indication: DRUG USE FOR UNKNOWN INDICATION
     Dates: start: 20061004, end: 20061004
  14. CLEXANE [Concomitant]
     Indication: DRUG USE FOR UNKNOWN INDICATION
     Dates: start: 20060930
  15. HEPARIN [Concomitant]
     Indication: DRUG USE FOR UNKNOWN INDICATION
     Dates: start: 20061005, end: 20061012
  16. LOPERAMIDE HCL [Concomitant]
     Indication: DRUG USE FOR UNKNOWN INDICATION
     Dates: start: 20061006, end: 20061009
  17. SUPPLEMENT NOS [Concomitant]
     Indication: DRUG USE FOR UNKNOWN INDICATION
     Dates: start: 20061006, end: 20061007
  18. SLOW-K [Concomitant]
     Indication: DRUG USE FOR UNKNOWN INDICATION
     Dates: start: 20061008, end: 20061008
  19. CHLORVESCENT [Concomitant]
     Indication: DRUG USE FOR UNKNOWN INDICATION
     Dates: start: 20061008, end: 20061010
  20. AUGMENTIN '125' [Concomitant]
     Indication: DRUG USE FOR UNKNOWN INDICATION
     Dates: start: 20060930, end: 20061003

REACTIONS (3)
  - CONFUSIONAL STATE [None]
  - DYSPHAGIA [None]
  - PULMONARY EMBOLISM [None]
